FAERS Safety Report 14185240 (Version 1)
Quarter: 2017Q4

REPORT INFORMATION
  Report Type: Spontaneous
  Country: US (occurrence: US)
  Receive Date: 20171114
  Receipt Date: 20171114
  Transmission Date: 20180321
  Serious: Yes (Other)
  Sender: FDA-Public Use
  Company Number: US-ASTRAZENECA-2017SF14206

PATIENT
  Age: 48 Year
  Sex: Male
  Weight: 93 kg

DRUGS (3)
  1. MOVANTIK [Suspect]
     Active Substance: NALOXEGOL OXALATE
     Indication: CONSTIPATION
     Route: 048
     Dates: start: 201701, end: 201702
  2. PROTONICS [Concomitant]
     Indication: ULCER
     Route: 048
     Dates: start: 201405
  3. NORCO [Concomitant]
     Active Substance: ACETAMINOPHEN\HYDROCODONE BITARTRATE
     Indication: PAIN
     Dosage: 5/325, TAKING 3 TAB A DAY, NOW DOWN TO ONE PER DAY
     Route: 048

REACTIONS (2)
  - Colitis ischaemic [Unknown]
  - Off label use [Recovered/Resolved]

NARRATIVE: CASE EVENT DATE: 2017
